FAERS Safety Report 21049625 (Version 1)
Quarter: 2022Q3

REPORT INFORMATION
  Report Type: Spontaneous
  Country: US (occurrence: US)
  Receive Date: 20220706
  Receipt Date: 20220706
  Transmission Date: 20221026
  Serious: No
  Sender: FDA-Public Use
  Company Number: US-PFIZER INC-202200929933

PATIENT
  Age: 59 Year
  Sex: Male

DRUGS (1)
  1. PAXLOVID [Suspect]
     Active Substance: NIRMATRELVIR\RITONAVIR
     Indication: COVID-19 treatment
     Dosage: 3 DF, HE TOOK TWICE DAILY; THEN EVERY EIGHT HOURS

REACTIONS (4)
  - Inappropriate schedule of product administration [Unknown]
  - Product dose omission in error [Unknown]
  - Product communication issue [Unknown]
  - Product label confusion [Unknown]
